FAERS Safety Report 16003368 (Version 4)
Quarter: 2019Q2

REPORT INFORMATION
  Report Type: Report from Study
  Country: CA (occurrence: CA)
  Receive Date: 20190226
  Receipt Date: 20190411
  Transmission Date: 20190711
  Serious: Yes (Other)
  Sender: FDA-Public Use
  Company Number: CA-ROCHE-2266485

PATIENT
  Age: 50 Year
  Sex: Male

DRUGS (14)
  1. DIPHENHYDRAMINE HCL [Concomitant]
     Active Substance: DIPHENHYDRAMINE HYDROCHLORIDE
     Indication: PREMEDICATION
     Route: 048
     Dates: start: 20190325
  2. LYRICA [Concomitant]
     Active Substance: PREGABALIN
  3. CELLCEPT [Suspect]
     Active Substance: MYCOPHENOLATE MOFETIL\MYCOPHENOLATE MOFETIL HYDROCHLORIDE
     Indication: PULMONARY FIBROSIS
     Dosage: DOSE AND FREQUECY-UNKNOWN ONGOING- YES
     Route: 065
     Dates: start: 2017
  4. CELLCEPT [Suspect]
     Active Substance: MYCOPHENOLATE MOFETIL\MYCOPHENOLATE MOFETIL HYDROCHLORIDE
     Indication: NECROTISING MYOSITIS
     Dosage: ONGOING:YES
     Route: 048
     Dates: start: 201607
  5. RITUXAN [Suspect]
     Active Substance: RITUXIMAB
     Indication: PULMONARY FIBROSIS
     Route: 042
     Dates: start: 20190325
  6. NAPROSYN [Concomitant]
     Active Substance: NAPROXEN
     Dosage: AS REQUIRED
     Route: 065
  7. RITUXAN [Suspect]
     Active Substance: RITUXIMAB
     Indication: NECROTISING MYOSITIS
  8. ISOPTIN [Concomitant]
     Active Substance: VERAPAMIL HYDROCHLORIDE
  9. ACETAMINOPHEN. [Concomitant]
     Active Substance: ACETAMINOPHEN
     Indication: PREMEDICATION
     Route: 048
     Dates: start: 20190325
  10. METHYLPREDNISOLONE. [Concomitant]
     Active Substance: METHYLPREDNISOLONE
     Indication: PREMEDICATION
     Route: 042
     Dates: start: 20190325
  11. CORTISONE [Concomitant]
     Active Substance: CORTISONE\HYDROCORTISONE
  12. ACTONEL [Concomitant]
     Active Substance: RISEDRONATE SODIUM
  13. DEXILANT [Concomitant]
     Active Substance: DEXLANSOPRAZOLE
  14. PREDNISONE. [Concomitant]
     Active Substance: PREDNISONE

REACTIONS (9)
  - Asthenia [Unknown]
  - Fatigue [Unknown]
  - Fibrosis [Unknown]
  - Necrotising myositis [Unknown]
  - Bacterial infection [Unknown]
  - Restrictive pulmonary disease [Not Recovered/Not Resolved]
  - Dyspnoea [Unknown]
  - Oxygen saturation decreased [Unknown]
  - Blood pressure diastolic increased [Unknown]

NARRATIVE: CASE EVENT DATE: 201811
